FAERS Safety Report 5230493-1 (Version None)
Quarter: 2007Q1

REPORT INFORMATION
  Report Type: 
  Country: None (occurrence: None)
  Receive Date: 20070202
  Receipt Date: 20070126
  Transmission Date: 20070707
  Serious: Yes (Other)
  Sender: FDA-Public Use
  Company Number: 235678

PATIENT
  Age: 70 Year
  Sex: Female
  Weight: 69 kg

DRUGS (8)
  1. TNKASE [Suspect]
     Indication: DRUG USE FOR UNKNOWN INDICATION
     Dosage: INTRAVENOUS
     Route: 042
  2. ASPIRIN [Concomitant]
  3. ENOXAPARIN SODIUM [Concomitant]
  4. ATORVASTATIN CALCIUM [Concomitant]
  5. NITROGLYCERIN [Concomitant]
  6. CLOPIDOGREL BISULFATE (CLOPIDOGREL BISULFATE) [Concomitant]
  7. HEPARIN [Concomitant]
  8. METOPOLOL (METOPROLOL TARTRATE) [Concomitant]

REACTIONS (3)
  - AMNESIA [None]
  - HEMIPARESIS [None]
  - INTRAVENTRICULAR HAEMORRHAGE [None]
